FAERS Safety Report 7636429-8 (Version None)
Quarter: 2011Q3

REPORT INFORMATION
  Report Type: 
  Country: None (occurrence: None)
  Receive Date: 20110726
  Receipt Date: 20110711
  Transmission Date: 20111222
  Serious: Yes (Hospitalization)
  Sender: FDA-Public Use
  Company Number: PT-WATSON-2011-11269

PATIENT
  Age: 43 Year
  Sex: Male

DRUGS (1)
  1. ALLOPURINOL [Suspect]
     Indication: HYPERURICAEMIA
     Route: 065

REACTIONS (2)
  - TOXIC EPIDERMAL NECROLYSIS [None]
  - EYE DISORDER [None]
